FAERS Safety Report 4807838-7 (Version None)
Quarter: 2005Q4

REPORT INFORMATION
  Report Type: 
  Country: None (occurrence: None)
  Receive Date: 20051020
  Receipt Date: 20051010
  Transmission Date: 20060501
  Serious: Yes (Congenital Anomaly, Other)
  Sender: FDA-Public Use
  Company Number: 2005141208

PATIENT

DRUGS (3)
  1. GABAPENTIN [Suspect]
     Indication: EPILEPSY
     Dosage: 2400 MG (1200 MG, 2 IN 1 D), PLACENTAL
     Route: 064
  2. KEPPRA [Suspect]
     Indication: EPILEPSY
     Dosage: 4 GRAM (2 GRAM, 2 IN 1 D), PLACENTAL
     Route: 064
  3. LAMOTRIGINE [Suspect]
     Indication: EPILEPSY
     Dosage: 800 MG (400 MG, 2 IN 1 D), PLACENTAL
     Route: 064

REACTIONS (2)
  - DRUG EXPOSURE DURING PREGNANCY [None]
  - TALIPES [None]
